FAERS Safety Report 8101995-5 (Version None)
Quarter: 2012Q1

REPORT INFORMATION
  Report Type: 
  Country: None (occurrence: None)
  Receive Date: 20120131
  Receipt Date: 20120126
  Transmission Date: 20120608
  Serious: Yes (Other)
  Sender: FDA-Public Use
  Company Number: US-ROXANE LABORATORIES, INC.-2012-RO-00559RO

PATIENT
  Age: 51 Year
  Sex: Female

DRUGS (7)
  1. METOPROLOL TARTRATE [Suspect]
  2. ESOMEPRAZOLE SODIUM [Suspect]
  3. FUROSEMIDE [Suspect]
  4. ISOSORBIDE MONONITRATE [Suspect]
  5. ASPIRIN [Suspect]
  6. LEVOTHYROXINE SODIUM [Suspect]
  7. MULTI-VITAMINS [Suspect]

REACTIONS (5)
  - DIVERTICULUM [None]
  - GASTRITIS [None]
  - GASTROINTESTINAL TRACT MUCOSAL PIGMENTATION [None]
  - HIATUS HERNIA [None]
  - HAEMORRHOIDS [None]
